FAERS Safety Report 15982869 (Version 1)
Quarter: 2019Q1

REPORT INFORMATION
  Report Type: Spontaneous
  Country: US (occurrence: US)
  Receive Date: 20190219
  Receipt Date: 20190219
  Transmission Date: 20190418
  Serious: Yes (Life-Threatening, Hospitalization)
  Sender: FDA-Public Use
  Company Number: US-SHIRE-US201904968

PATIENT
  Age: 54 Year
  Sex: Female

DRUGS (1)
  1. FIRAZYR [Suspect]
     Active Substance: ICATIBANT ACETATE
     Indication: PRODUCT USED FOR UNKNOWN INDICATION
     Dosage: 3-30MG, AS REQ^D
     Route: 058
     Dates: start: 20180714

REACTIONS (1)
  - Hereditary angioedema [Recovered/Resolved with Sequelae]

NARRATIVE: CASE EVENT DATE: 20181204
